FAERS Safety Report 5888933-0 (Version None)
Quarter: 2008Q3

REPORT INFORMATION
  Report Type: 
  Country: None (occurrence: None)
  Receive Date: 20080917
  Receipt Date: 20080917
  Transmission Date: 20090109
  Serious: Yes (Other)
  Sender: FDA-Public Use
  Company Number: None

PATIENT
  Age: 51 Year
  Sex: Female
  Weight: 120.2032 kg

DRUGS (1)
  1. RECLAST [Suspect]
     Indication: OSTEOPOROSIS
     Dosage: 5MG/100ML 0.9% NS ONCE IV
     Route: 042
     Dates: start: 20080813

REACTIONS (5)
  - ARTHRALGIA [None]
  - BONE PAIN [None]
  - JOINT EFFUSION [None]
  - MYALGIA [None]
  - PYREXIA [None]
